FAERS Safety Report 5244928-1 (Version None)
Quarter: 2007Q1

REPORT INFORMATION
  Report Type: 
  Country: None (occurrence: None)
  Receive Date: 20070221
  Receipt Date: 20070221
  Transmission Date: 20070707
  Serious: Yes (Hospitalization)
  Sender: FDA-Public Use
  Company Number: None

PATIENT
  Age: 49 Year
  Sex: Female

DRUGS (16)
  1. PROVIGIL [Suspect]
  2. MODAFINIL [Suspect]
  3. CELEBREX [Concomitant]
  4. INDERAL [Concomitant]
  5. PREDNISONE [Concomitant]
  6. PROTONIX [Concomitant]
  7. CLORAZEPATE [Concomitant]
  8. IMURAN [Concomitant]
  9. FENTANYL [Concomitant]
  10. NASONEX [Concomitant]
  11. MARANOL [Concomitant]
  12. NYSTATIN [Concomitant]
  13. CYMBALTA [Concomitant]
  14. REQUIP [Concomitant]
  15. VICODIN [Concomitant]
  16. MECLIZINE [Concomitant]

REACTIONS (1)
  - TOXIC EPIDERMAL NECROLYSIS [None]
